FAERS Safety Report 5358945-4 (Version None)
Quarter: 2007Q2

REPORT INFORMATION
  Report Type: 
  Country: None (occurrence: None)
  Receive Date: 20070615
  Receipt Date: 20070607
  Transmission Date: 20071010
  Serious: Yes (Other)
  Sender: FDA-Public Use
  Company Number: B0475322A

PATIENT
  Age: 94 Year
  Sex: Female

DRUGS (1)
  1. AUGMENTIN '125' [Suspect]
     Indication: DIVERTICULITIS
     Route: 048
     Dates: start: 20070524, end: 20070524

REACTIONS (2)
  - ANGIOEDEMA [None]
  - SYNCOPE [None]
